FAERS Safety Report 8202363 (Version 3)
Quarter: 2013Q2

REPORT INFORMATION
  Report Type: Spontaneous
  Country: US (occurrence: None)
  Receive Date: 20110909
  Receipt Date: 20120912
  Transmission Date: 20140414
  Serious: Yes (Other)
  Sender: FDA-Public Use
  Company Number: 2011SP035527

PATIENT
  Age: 55 Year
  Sex: Female
  Weight: 78.93 kg

DRUGS (13)
  1. VICTRELIS [Suspect]
     Indication: PRODUCT USED FOR UNKNOWN INDICATION
     Route: 048
     Dates: start: 20110704, end: 20120415
  2. PEGINTRON [Suspect]
     Indication: PRODUCT USED FOR UNKNOWN INDICATION
     Route: 058
     Dates: start: 20110603
  3. RIBAVIRIN [Suspect]
     Indication: HEPATITIS C
     Route: 048
     Dates: start: 20110603
  4. RIBAVIRIN [Suspect]
     Indication: HEPATIC CIRRHOSIS
     Route: 048
     Dates: start: 20110603
  5. CALCIUM WITH VITAMIN D [Concomitant]
  6. FOLIC ACID [Concomitant]
  7. IMITREX [Concomitant]
  8. IRON [Concomitant]
  9. LEXAPRO [Concomitant]
  10. ORACEA [Concomitant]
  11. VITAMIN B COMPLEX [Concomitant]
  12. DESONIDE [Concomitant]
  13. NEUPOGEN [Concomitant]

REACTIONS (11)
  - NEUTROPENIA [None]
  - ODYNOPHAGIA [None]
  - FATIGUE [None]
  - MYALGIA [None]
  - DIARRHOEA [None]
  - WEIGHT DECREASED [None]
  - INSOMNIA [None]
  - ASTHENIA [None]
  - INFLUENZA LIKE ILLNESS [None]
  - Alopecia [None]
  - Viral load increased [None]
